FAERS Safety Report 20490874 (Version 1)
Quarter: 2022Q1

REPORT INFORMATION
  Report Type: Spontaneous
  Country: US (occurrence: None)
  Receive Date: 20220218
  Receipt Date: 20220218
  Transmission Date: 20220423
  Serious: Yes (Hospitalization)
  Sender: FDA-Public Use
  Company Number: None

PATIENT
  Sex: Male

DRUGS (10)
  1. MYCOPHENOLIC ACID [Suspect]
     Active Substance: MYCOPHENOLIC ACID
     Indication: Liver transplant
     Dosage: TAKE 2 TABLETS (1,000 MG TOTAL) BY MOUTH EVERY 12 (TWELVE) HOURS. PREVENTS REJECTION.
     Route: 048
     Dates: start: 20210206
  2. ELIQUIS [Concomitant]
     Active Substance: APIXABAN
  3. GAVILYTE G [Concomitant]
     Active Substance: POLYETHYLENE GLYCOL 3350\POTASSIUM CHLORIDE\SODIUM BICARBONATE\SODIUM CHLORIDE\SODIUM SULFATE
  4. LISINOPRIL [Concomitant]
     Active Substance: LISINOPRIL
  5. MYCOPHENOLATE MOFETIL [Concomitant]
     Active Substance: MYCOPHENOLATE MOFETIL
  6. NORVASC [Concomitant]
     Active Substance: AMLODIPINE BESYLATE
  7. NOVOLOG [Concomitant]
     Active Substance: INSULIN ASPART
  8. SILDENAFIL [Concomitant]
     Active Substance: SILDENAFIL
  9. TACROLIMUS [Concomitant]
     Active Substance: TACROLIMUS
  10. TACROLIMUS A [Concomitant]

REACTIONS (1)
  - Dyspnoea [None]
